FAERS Safety Report 5280417-6 (Version None)
Quarter: 2007Q1

REPORT INFORMATION
  Report Type: 
  Country: None (occurrence: None)
  Receive Date: 20070326
  Receipt Date: 20070326
  Transmission Date: 20070707
  Serious: Yes (Other)
  Sender: FDA-Public Use
  Company Number: None

PATIENT
  Age: 71 Year
  Sex: Male

DRUGS (1)
  1. CHLOROPREP [Suspect]

REACTIONS (4)
  - BLISTER [None]
  - ERYTHEMA [None]
  - FEELING HOT [None]
  - WOUND DRAINAGE [None]
